FAERS Safety Report 23284095 (Version 1)
Quarter: 2023Q4

REPORT INFORMATION
  Report Type: Spontaneous
  Country: US (occurrence: None)
  Receive Date: 20231211
  Receipt Date: 20231211
  Transmission Date: 20240109
  Serious: Yes (Hospitalization)
  Sender: FDA-Public Use
  Company Number: None

PATIENT
  Sex: Female

DRUGS (2)
  1. CAPECITABINE [Suspect]
     Active Substance: CAPECITABINE
     Indication: Rectosigmoid cancer
     Dosage: FREQUENCY : AS DIRECTED;?TAKE 1 TABLET BY MOUTH 2 TIMES A DAY, BEGINNING THE EVENING OF DAY 1 UNTIL
     Route: 048
     Dates: start: 202305
  2. CAPECITABINE [Suspect]
     Active Substance: CAPECITABINE
     Indication: Rectosigmoid cancer
     Dosage: FREQUENCY : AS DIRECTED;?500MG, TAKE 2 TABLETS BY MOUTH EVERY MORNING AND 1 TABLET EVERY EVENING FOR
     Route: 048
     Dates: start: 202305

REACTIONS (4)
  - Blood glucose increased [None]
  - Diarrhoea [None]
  - Dehydration [None]
  - Limb discomfort [None]
